FAERS Safety Report 21158013 (Version 2)
Quarter: 2023Q1

REPORT INFORMATION
  Report Type: Spontaneous
  Country: HR (occurrence: None)
  Receive Date: 20220801
  Receipt Date: 20230131
  Transmission Date: 20230418
  Serious: Yes (Other)
  Sender: FDA-Public Use
  Company Number: HR-ROCHE-3151285

PATIENT
  Age: 15 Year
  Sex: Female

DRUGS (3)
  1. RIVOTRIL [Suspect]
     Active Substance: CLONAZEPAM
     Indication: Product used for unknown indication
     Dosage: 17 TBL. X 0.5 MG
     Route: 048
     Dates: start: 202206, end: 202206
  2. RIVOTRIL [Suspect]
     Active Substance: CLONAZEPAM
     Dosage: 2 MILLIGRAM IN 1 DAY
     Route: 048
     Dates: start: 20221206, end: 20221206
  3. ALPRAZOLAM [Suspect]
     Active Substance: ALPRAZOLAM
     Indication: Product used for unknown indication
     Dosage: 20 TBL. X 0.25 MG
     Route: 048
     Dates: start: 202206, end: 202206

REACTIONS (5)
  - Suicide attempt [Unknown]
  - Intentional overdose [Unknown]
  - Confusional state [Unknown]
  - Agitation [Unknown]
  - Somnolence [Unknown]

NARRATIVE: CASE EVENT DATE: 20220601
